FAERS Safety Report 6602744-X (Version None)
Quarter: 2010Q1

REPORT INFORMATION
  Report Type: 
  Country: None (occurrence: None)
  Receive Date: 20100225
  Receipt Date: 20100218
  Transmission Date: 20100710
  Serious: Yes (Hospitalization)
  Sender: FDA-Public Use
  Company Number: DK-ABBOTT-10P-044-0627397-00

PATIENT
  Sex: Female
  Weight: 105 kg

DRUGS (1)
  1. REDUCTIL [Suspect]
     Indication: OVERWEIGHT
     Dosage: DOSE PER 24 HOURS: 3. UNIT DOSE UNKNOWN.
     Route: 048
     Dates: start: 20090727, end: 20090730

REACTIONS (1)
  - THROMBOSIS [None]
